FAERS Safety Report 20682602 (Version 3)
Quarter: 2022Q2

REPORT INFORMATION
  Report Type: Spontaneous
  Country: US (occurrence: US)
  Receive Date: 20220407
  Receipt Date: 20220614
  Transmission Date: 20220721
  Serious: No
  Sender: FDA-Public Use
  Company Number: US-SUNOVION-2022SUN001087

PATIENT

DRUGS (1)
  1. XOPENEX [Suspect]
     Active Substance: LEVALBUTEROL HYDROCHLORIDE
     Dosage: 45 ?G
     Route: 055

REACTIONS (3)
  - Drug ineffective [Unknown]
  - Device issue [Unknown]
  - Incorrect dose administered by device [None]
